FAERS Safety Report 14657107 (Version 1)
Quarter: 2018Q1

REPORT INFORMATION
  Report Type: Spontaneous
  Country: US (occurrence: US)
  Receive Date: 20180319
  Receipt Date: 20180319
  Transmission Date: 20180509
  Serious: No
  Sender: FDA-Public Use
  Company Number: -SAAVPROD-US01-21833

PATIENT
  Age: 23 Year
  Sex: Female
  Weight: 90.72 kg

DRUGS (3)
  1. TRIAMCINOLONE ACETONIDE. [Suspect]
     Active Substance: TRIAMCINOLONE ACETONIDE
     Indication: INFECTION
     Dosage: DOSE UNIT: 60  DOSE:2 PUFF(S)
     Route: 055
     Dates: start: 19990520
  2. ATROVENT [Concomitant]
     Active Substance: IPRATROPIUM BROMIDE
  3. CECLOR [Concomitant]
     Active Substance: CEFACLOR

REACTIONS (2)
  - Tremor [Unknown]
  - Dizziness [Unknown]

NARRATIVE: CASE EVENT DATE: 19990520
